FAERS Safety Report 4303420-9 (Version None)
Quarter: 2004Q1

REPORT INFORMATION
  Report Type: 
  Country: None (occurrence: None)
  Receive Date: 20040223
  Receipt Date: 20040205
  Transmission Date: 20041129
  Serious: Yes (Hospitalization)
  Sender: FDA-Public Use
  Company Number: 2004IM000293

PATIENT
  Age: 43 Year
  Sex: Male

DRUGS (2)
  1. INTERFERON ALFACON-1 (INTERFERON ALFACON-1) [Suspect]
     Indication: HEPATITIS C
     Dosage: 9 MU; SUBCUTANEOUS
     Route: 058
     Dates: start: 20030519
  2. RIBAVIRIN [Suspect]
     Indication: HEPATITIS C
     Dosage: 1000 MG; ORAL
     Route: 048
     Dates: start: 20030814

REACTIONS (3)
  - ACUTE PSYCHOSIS [None]
  - CATATONIA [None]
  - PNEUMONIA PNEUMOCOCCAL [None]
